FAERS Safety Report 13653093 (Version 1)
Quarter: 2017Q2

REPORT INFORMATION
  Report Type: Spontaneous
  Country: US (occurrence: US)
  Receive Date: 20170614
  Receipt Date: 20170614
  Transmission Date: 20170830
  Serious: No
  Sender: FDA-Public Use
  Company Number: US-ROCHE-1313673

PATIENT
  Age: 56 Year
  Sex: Female

DRUGS (2)
  1. XELODA [Suspect]
     Active Substance: CAPECITABINE
     Indication: PRODUCT USED FOR UNKNOWN INDICATION
     Dosage: FOR 14 DAYS. REPEAT EVERY 21 DAYS FOR 8 CYCLES
     Route: 048
  2. XELODA [Suspect]
     Active Substance: CAPECITABINE
     Dosage: FOR 14 DAYS. REPEAT EVERY 21 DAYS FOR 8 CYCLE
     Route: 048

REACTIONS (3)
  - Dry skin [Unknown]
  - Skin discolouration [Unknown]
  - Palmar-plantar erythrodysaesthesia syndrome [Unknown]
